FAERS Safety Report 9805395 (Version 1)
Quarter: 2014Q1

REPORT INFORMATION
  Report Type: Spontaneous
  Country: US (occurrence: US)
  Receive Date: 20140109
  Receipt Date: 20140109
  Transmission Date: 20141002
  Serious: No
  Sender: FDA-Public Use
  Company Number: US-PFIZER INC-2014005938

PATIENT
  Age: 56 Year
  Sex: Female
  Weight: 104 kg

DRUGS (4)
  1. NEURONTIN [Suspect]
     Indication: HOT FLUSH
     Dosage: 1800 MG, 2X/DAY
  2. NEURONTIN [Suspect]
     Indication: NEUROPATHY PERIPHERAL
  3. DETROL LA [Suspect]
     Indication: HYPERTONIC BLADDER
     Dosage: 2 MG, DAILY
  4. EFFEXOR XR [Suspect]
     Indication: HOT FLUSH
     Dosage: 150 MG, DAILY

REACTIONS (3)
  - Off label use [Unknown]
  - Oropharyngeal pain [Unknown]
  - Cough [Unknown]
